FAERS Safety Report 16785402 (Version 1)
Quarter: 2019Q3

REPORT INFORMATION
  Report Type: Report from Study
  Country: US (occurrence: US)
  Receive Date: 20190909
  Receipt Date: 20190909
  Transmission Date: 20191005
  Serious: No
  Sender: FDA-Public Use
  Company Number: US-LEO PHARMA-324072

PATIENT
  Sex: Female

DRUGS (1)
  1. SKINOREN CUTANEOUS FOAM [Suspect]
     Active Substance: AZELAIC ACID
     Indication: ROSACEA
     Route: 061

REACTIONS (1)
  - Drug ineffective [Unknown]
